FAERS Safety Report 26155916 (Version 1)
Quarter: 2025Q4

REPORT INFORMATION
  Report Type: Report from Study
  Country: CH (occurrence: CH)
  Receive Date: 20251215
  Receipt Date: 20251215
  Transmission Date: 20260117
  Serious: No
  Sender: MIRUM PHARMACEUTICALS
  Company Number: CH-MIRUM PHARMACEUTICALS, INC.-CH-MIR-25-00926

PATIENT

DRUGS (9)
  1. MARALIXIBAT CHLORIDE [Suspect]
     Active Substance: MARALIXIBAT CHLORIDE
     Indication: Pruritus
     Dosage: 190 MICROGRAM/KILOGRAM, QD
     Route: 065
  2. MARALIXIBAT CHLORIDE [Suspect]
     Active Substance: MARALIXIBAT CHLORIDE
     Dosage: 380 MICROGRAM/KILOGRAM, QD
     Route: 065
  3. MARALIXIBAT CHLORIDE [Suspect]
     Active Substance: MARALIXIBAT CHLORIDE
     Dosage: 250 MICROGRAM/KILOGRAM, QD
     Route: 065
  4. URSODIOL [Concomitant]
     Active Substance: URSODIOL
     Indication: Pruritus
     Dosage: 500 MILLIGRAM, TID
     Route: 065
  5. CHOLESTYRAMINE [Concomitant]
     Active Substance: CHOLESTYRAMINE
     Indication: Cholestasis of pregnancy
     Dosage: UNK
     Route: 065
  6. CHOLESTYRAMINE [Concomitant]
     Active Substance: CHOLESTYRAMINE
     Indication: Primary biliary cholangitis
  7. LEVOCETIRIZINE [Concomitant]
     Active Substance: LEVOCETIRIZINE
     Indication: Pruritus
     Dosage: UNKNOWN
     Route: 065
  8. COLD CREAM NATUREL [Concomitant]
     Indication: Pruritus
     Dosage: UNKNOWN
     Route: 065
  9. OPTIDERM F [Concomitant]
     Indication: Pruritus
     Dosage: UNKNOWN
     Route: 065

REACTIONS (4)
  - Blood alkaline phosphatase increased [Unknown]
  - Bile acids increased [Recovering/Resolving]
  - Diarrhoea [Recovered/Resolved]
  - Exposure during pregnancy [Unknown]
